FAERS Safety Report 15771957 (Version 1)
Quarter: 2018Q4

REPORT INFORMATION
  Report Type: Report from Study
  Country: KR (occurrence: KR)
  Receive Date: 20181228
  Receipt Date: 20181228
  Transmission Date: 20190205
  Serious: Yes (Other)
  Sender: FDA-Public Use
  Company Number: KR-ACTELION-A-CH2018-184115

PATIENT
  Age: 40 Year
  Sex: Female

DRUGS (6)
  1. OPSUMIT [Suspect]
     Active Substance: MACITENTAN
     Indication: RIGHT-TO-LEFT CARDIAC SHUNT
  2. UPTRAVI [Suspect]
     Active Substance: SELEXIPAG
     Indication: PULMONARY ARTERIAL HYPERTENSION
     Dosage: 400 MCG, QD
     Route: 048
  3. OPSUMIT [Suspect]
     Active Substance: MACITENTAN
     Indication: PULMONARY ARTERIAL HYPERTENSION
     Dosage: 1 DF, QD
     Route: 048
  4. PAHTENSION [Concomitant]
     Indication: RIGHT-TO-LEFT CARDIAC SHUNT
  5. PAHTENSION [Concomitant]
     Indication: PULMONARY ARTERIAL HYPERTENSION
     Route: 048
  6. UPTRAVI [Suspect]
     Active Substance: SELEXIPAG
     Indication: RIGHT-TO-LEFT CARDIAC SHUNT

REACTIONS (5)
  - Gastrooesophageal reflux disease [Unknown]
  - Nausea [Unknown]
  - Vomiting [Unknown]
  - Malaise [Unknown]
  - Dyspepsia [Unknown]

NARRATIVE: CASE EVENT DATE: 20181217
